FAERS Safety Report 24206442 (Version 1)
Quarter: 2024Q3

REPORT INFORMATION
  Report Type: Spontaneous
  Country: JP (occurrence: JP)
  Receive Date: 20240813
  Receipt Date: 20240813
  Transmission Date: 20241017
  Serious: Yes (Other)
  Sender: MERCK
  Company Number: JP-MSD-M2024-31178

PATIENT
  Age: 53 Year
  Sex: Female

DRUGS (3)
  1. KEYTRUDA [Suspect]
     Active Substance: PEMBROLIZUMAB
     Indication: Cancer with a high tumour mutational burden
     Dosage: 200 MILLIGRAM, Q3W
     Route: 041
     Dates: start: 20220809
  2. KEYTRUDA [Suspect]
     Active Substance: PEMBROLIZUMAB
     Indication: Ovarian clear cell carcinoma
  3. KEYTRUDA [Suspect]
     Active Substance: PEMBROLIZUMAB
     Indication: Microsatellite instability cancer

REACTIONS (1)
  - Tumour pseudoprogression [Recovered/Resolved]

NARRATIVE: CASE EVENT DATE: 20221001
